FAERS Safety Report 6409210-5 (Version None)
Quarter: 2009Q4

REPORT INFORMATION
  Report Type: 
  Country: None (occurrence: None)
  Receive Date: 20091021
  Receipt Date: 20091016
  Transmission Date: 20100525
  Serious: Yes (Death, Other)
  Sender: FDA-Public Use
  Company Number: PHHY2009JP15357

PATIENT
  Sex: Male
  Weight: 65 kg

DRUGS (2)
  1. ZOMETA [Suspect]
     Indication: MULTIPLE MYELOMA
     Dosage: 4 MG, UNK
     Route: 042
     Dates: start: 20060926, end: 20080110
  2. BISPHONAL [Suspect]
     Indication: MULTIPLE MYELOMA
     Dosage: 10 MG, UNK
     Route: 042
     Dates: start: 20051229, end: 20060822

REACTIONS (10)
  - BONE DISORDER [None]
  - DENTAL CLEANING [None]
  - FISTULA [None]
  - GINGIVAL PAIN [None]
  - MALIGNANT NEOPLASM PROGRESSION [None]
  - OSTEONECROSIS [None]
  - PURULENT DISCHARGE [None]
  - SEQUESTRECTOMY [None]
  - TOOTH EXTRACTION [None]
  - TOOTHACHE [None]
